FAERS Safety Report 6105375-3 (Version None)
Quarter: 2009Q1

REPORT INFORMATION
  Report Type: 
  Country: None (occurrence: None)
  Receive Date: 20090306
  Receipt Date: 20090218
  Transmission Date: 20090719
  Serious: Yes (Other)
  Sender: FDA-Public Use
  Company Number: JP-PFIZER INC-2009156833

PATIENT

DRUGS (10)
  1. MYCOBUTIN [Suspect]
     Dosage: 300 MG, 1X/DAY
     Route: 048
     Dates: start: 20081212
  2. CIPROXAN [Concomitant]
     Route: 048
     Dates: start: 20081114
  3. NOVOLIN R [Concomitant]
     Route: 058
     Dates: start: 20081217
  4. NOVOLIN R [Concomitant]
     Route: 058
     Dates: start: 20081226
  5. MELBIN [Concomitant]
     Route: 048
     Dates: start: 20080315, end: 20081216
  6. AMARYL [Concomitant]
     Route: 048
     Dates: start: 20080315, end: 20081216
  7. MIGLITOL [Concomitant]
     Route: 048
     Dates: start: 20081119, end: 20081216
  8. VALTREX [Concomitant]
     Route: 048
     Dates: start: 20081226, end: 20081230
  9. WASSER V GRAN. [Concomitant]
     Route: 048
     Dates: start: 20080128
  10. SELBEX [Concomitant]
     Route: 048
     Dates: start: 20080128

REACTIONS (3)
  - CONDITION AGGRAVATED [None]
  - DIABETES MELLITUS [None]
  - GLYCOSYLATED HAEMOGLOBIN INCREASED [None]
